FAERS Safety Report 9004456 (Version 6)
Quarter: 2013Q1

REPORT INFORMATION
  Report Type: Report from Study
  Country: TR (occurrence: TR)
  Receive Date: 20130108
  Receipt Date: 20130326
  Transmission Date: 20140127
  Serious: Yes (Life-Threatening)
  Sender: FDA-Public Use
  Company Number: TR-NOVOPROD-368132

PATIENT
  Age: 70 Year
  Sex: Male
  Weight: 107 kg

DRUGS (1)
  1. LIRAGLUTIDE FLEXPEN [Suspect]
     Indication: TYPE 2 DIABETES MELLITUS
     Dosage: 1.8 MG, UNK
     Route: 058
     Dates: start: 20111104

REACTIONS (1)
  - Pulmonary mass [Not Recovered/Not Resolved]
